FAERS Safety Report 6303788-8 (Version None)
Quarter: 2009Q3

REPORT INFORMATION
  Report Type: 
  Country: None (occurrence: None)
  Receive Date: 20090805
  Receipt Date: 20090724
  Transmission Date: 20100115
  Serious: Yes (Death)
  Sender: FDA-Public Use
  Company Number: URSO-2009-075

PATIENT
  Age: 61 Year
  Sex: Male

DRUGS (12)
  1. URSODIOL [Suspect]
     Indication: HEPATITIS C VIRUS TEST
     Dosage: 300 MG ORAL ; 600MG ORAL
     Route: 048
     Dates: start: 20071101, end: 20071114
  2. URSODIOL [Suspect]
     Indication: LIVER DISORDER
     Dosage: 300 MG ORAL ; 600MG ORAL
     Route: 048
     Dates: start: 20071101, end: 20071114
  3. URSODIOL [Suspect]
     Indication: HEPATITIS C VIRUS TEST
     Dosage: 300 MG ORAL ; 600MG ORAL
     Route: 048
     Dates: start: 20071115, end: 20080604
  4. URSODIOL [Suspect]
     Indication: LIVER DISORDER
     Dosage: 300 MG ORAL ; 600MG ORAL
     Route: 048
     Dates: start: 20071115, end: 20080604
  5. URSODIOL [Suspect]
     Indication: HEPATITIS C VIRUS TEST
     Dosage: 300 MG ORAL ; 600MG ORAL
     Route: 048
     Dates: start: 20080601, end: 20080717
  6. URSODIOL [Suspect]
     Indication: LIVER DISORDER
     Dosage: 300 MG ORAL ; 600MG ORAL
     Route: 048
     Dates: start: 20080601, end: 20080717
  7. ENALAPRIL MALEATE [Concomitant]
  8. ADALAT CC [Concomitant]
  9. ALLELOCK (OLOPATADINE) [Concomitant]
  10. MUCOSTA (REBAMIPIDE) [Concomitant]
  11. HIRUDOID (HEPARINOID) [Concomitant]
  12. MYSER OINTMENT (DIFLUPREDNATE) [Concomitant]

REACTIONS (18)
  - ADULT T-CELL LYMPHOMA/LEUKAEMIA [None]
  - ALOPECIA [None]
  - CHOLELITHIASIS [None]
  - CHRONIC HEPATITIS [None]
  - CONSTIPATION [None]
  - DRUG INEFFECTIVE [None]
  - GAIT DISTURBANCE [None]
  - HEPATIC CIRRHOSIS [None]
  - HEPATITIS [None]
  - HERPES DERMATITIS [None]
  - HYPERCALCAEMIA [None]
  - HYPOGEUSIA [None]
  - PNEUMONIA [None]
  - PYELOCALIECTASIS [None]
  - RENAL CYST [None]
  - THERAPEUTIC RESPONSE DECREASED [None]
  - THERAPY RESPONDER [None]
  - TREMOR [None]
